FAERS Safety Report 17398206 (Version 1)
Quarter: 2020Q1

REPORT INFORMATION
  Report Type: Spontaneous
  Country: ES (occurrence: ES)
  Receive Date: 20200210
  Receipt Date: 20200210
  Transmission Date: 20200409
  Serious: Yes (Life-Threatening, Hospitalization)
  Sender: FDA-Public Use
  Company Number: ES-PFIZER INC-2020057738

PATIENT
  Age: 68 Year
  Sex: Female

DRUGS (6)
  1. VENLAFAXINE HCL [Suspect]
     Active Substance: VENLAFAXINE HYDROCHLORIDE
     Indication: BIPOLAR DISORDER
     Dosage: 75 MG, 1X/DAY (1-0-0)
     Dates: start: 20200116
  2. PLENUR [LITHIUM CARBONATE] [Suspect]
     Active Substance: LITHIUM CARBONATE
     Indication: BIPOLAR DISORDER
     Dosage: 200 MG, 1X/DAY (0-0-1)
     Route: 048
     Dates: start: 20200113, end: 20200116
  3. PLENUR [LITHIUM CARBONATE] [Suspect]
     Active Substance: LITHIUM CARBONATE
     Dosage: 400 MG, 1X/DAY
     Route: 048
     Dates: start: 20200116, end: 20200119
  4. QUETIAPINE. [Suspect]
     Active Substance: QUETIAPINE
     Indication: BIPOLAR DISORDER
     Dosage: 600 MG, 1X/DAY (100-100-400)
     Dates: start: 20200116, end: 20200119
  5. HALOPERIDOL. [Suspect]
     Active Substance: HALOPERIDOL
     Indication: INSOMNIA
     Dosage: 1 DF, 1X/DAY
     Dates: start: 20200118, end: 20200119
  6. OLANZAPINE. [Suspect]
     Active Substance: OLANZAPINE
     Indication: ANXIETY DISORDER
     Dosage: 10 MG, 1X/DAY
     Dates: start: 20200117, end: 20200119

REACTIONS (3)
  - Hyperthermia malignant [Recovering/Resolving]
  - Off label use [Not Recovered/Not Resolved]
  - Product use in unapproved indication [Not Recovered/Not Resolved]

NARRATIVE: CASE EVENT DATE: 20200116
